FAERS Safety Report 18066910 (Version 2)
Quarter: 2020Q4

REPORT INFORMATION
  Report Type: Other
  Country: DK (occurrence: DK)
  Receive Date: 20200724
  Receipt Date: 20201006
  Transmission Date: 20210113
  Serious: Yes (Hospitalization, Other)
  Sender: FDA-Public Use
  Company Number: DK-GLENMARK PHARMACEUTICALS-2020GMK048666

PATIENT

DRUGS (10)
  1. PANTOPRAZOLE [Concomitant]
     Active Substance: PANTOPRAZOLE
     Indication: PROPHYLAXIS AGAINST GASTROINTESTINAL ULCER
     Dosage: 80 MILLIGRAM, OD
     Route: 048
     Dates: start: 20191203
  2. LINEZOLID. [Suspect]
     Active Substance: LINEZOLID
     Indication: ENDOCARDITIS
     Dosage: (600 MG DOSIS: STARTDOSIS 600 MG X 2. D. 23MAJ2020, 600 MG MORGEN, 300 MG AFTEN)
     Route: 048
     Dates: start: 20200515, end: 20200612
  3. POTASSIUM CHLORIDE. [Concomitant]
     Active Substance: POTASSIUM CHLORIDE
     Indication: MINERAL SUPPLEMENTATION
     Dosage: UNK
     Route: 048
     Dates: start: 20191207
  4. FUROSEMIDE. [Concomitant]
     Active Substance: FUROSEMIDE
     Indication: DIURETIC THERAPY
     Dosage: 160 MILLIGRAM, OD
     Route: 048
     Dates: start: 20200513
  5. AMOXICILLIN. [Concomitant]
     Active Substance: AMOXICILLIN
     Indication: ENDOCARDITIS
     Dosage: 3000 MILLIGRAM, OD
     Route: 048
     Dates: start: 20200515, end: 20200612
  6. CALCIUM + VIT D [Concomitant]
     Active Substance: CALCIUM\VITAMIN D
     Indication: MINERAL SUPPLEMENTATION
     Dosage: 2 DOSAGE FORM, OD (STRENGTH 400 MG + 19 ?G)
     Route: 048
     Dates: start: 20200129
  7. VIBEDEN [Concomitant]
     Active Substance: HYDROXOCOBALAMIN
     Indication: VITAMIN B12 DEFICIENCY
     Dosage: 1 MILLILITER AT EVERY 3 MONTH
     Route: 030
     Dates: start: 20200212
  8. CREON [Concomitant]
     Active Substance: PANCRELIPASE AMYLASE\PANCRELIPASE LIPASE\PANCRELIPASE PROTEASE
     Indication: STEATORRHOEA
     Dosage: UNK (STYRKE: LIPASE 40.000 EP-E OG LIPASE 25.000 EP-E DOSIS: 40.000 3XDGL + 25.000 EFTER BEHOV MAX 4
     Route: 048
     Dates: start: 20200131
  9. FERROUS FUMARATE [Concomitant]
     Active Substance: FERROUS FUMARATE
     Indication: MINERAL SUPPLEMENTATION
     Dosage: 1 DOSAGE FORM, OD (STRENGTH 100+60 MG)
     Route: 048
     Dates: start: 20200130
  10. ZINC SULFATE. [Concomitant]
     Active Substance: ZINC SULFATE
     Indication: MINERAL SUPPLEMENTATION
     Dosage: 22 MILLIGRAM, OD
     Route: 048
     Dates: start: 20200507

REACTIONS (2)
  - Discomfort [Recovering/Resolving]
  - Pancytopenia [Recovering/Resolving]

NARRATIVE: CASE EVENT DATE: 202006
